FAERS Safety Report 4376610-7 (Version None)
Quarter: 2004Q2

REPORT INFORMATION
  Report Type: 
  Country: None (occurrence: None)
  Receive Date: 20040608
  Receipt Date: 20040603
  Transmission Date: 20050107
  Serious: Yes (Other)
  Sender: FDA-Public Use
  Company Number: C-04-0031

PATIENT
  Age: 52 Year
  Sex: Female
  Weight: 76.2043 kg

DRUGS (1)
  1. LINDANE [Suspect]
     Indication: ACARODERMATITIS
     Dosage: ONCE APPLICATION
     Dates: start: 20040602

REACTIONS (2)
  - CONDITION AGGRAVATED [None]
  - DRUG INEFFECTIVE [None]
